FAERS Safety Report 8392276-3 (Version None)
Quarter: 2012Q2

REPORT INFORMATION
  Report Type: 
  Country: None (occurrence: None)
  Receive Date: 20120529
  Receipt Date: 20120517
  Transmission Date: 20120825
  Serious: Yes (Hospitalization)
  Sender: FDA-Public Use
  Company Number: CA-JNJFOC-20120516655

PATIENT
  Sex: Female
  Weight: 70 kg

DRUGS (17)
  1. GOLIMUMAB [Suspect]
     Route: 058
     Dates: start: 20070226
  2. PERCOCET [Concomitant]
     Route: 048
     Dates: start: 20090910
  3. MOTILIUM [Concomitant]
     Route: 048
     Dates: start: 20100818
  4. DOCUSATE [Concomitant]
     Route: 048
     Dates: start: 20110915
  5. METHOTREXATE [Concomitant]
     Route: 058
     Dates: start: 20070429
  6. CELEBREX [Concomitant]
     Route: 048
     Dates: start: 20080331
  7. TYLENOL W/ CODEINE NO. 3 [Concomitant]
     Route: 048
     Dates: start: 20110915
  8. GOLIMUMAB [Suspect]
     Indication: RHEUMATOID ARTHRITIS
     Route: 058
     Dates: start: 20120122
  9. FOLIC ACID [Concomitant]
     Route: 048
     Dates: start: 20050101
  10. MESALAMINE [Concomitant]
     Route: 048
  11. SYMBICORT [Concomitant]
     Route: 055
  12. MICARDIS [Concomitant]
     Route: 048
     Dates: start: 20100101
  13. NEXIUM [Concomitant]
     Route: 048
     Dates: start: 20100816
  14. FOSAMAX [Concomitant]
     Route: 048
  15. CYCLOMEN [Concomitant]
     Route: 048
     Dates: start: 20110526
  16. DICETEL [Concomitant]
     Route: 048
     Dates: start: 20090401
  17. CYCLOBENAZPRINE [Concomitant]
     Route: 048
     Dates: start: 20100701

REACTIONS (1)
  - HYSTERECTOMY [None]
